FAERS Safety Report 24237503 (Version 1)
Quarter: 2024Q3

REPORT INFORMATION
  Report Type: Spontaneous
  Country: US (occurrence: None)
  Receive Date: 20240821
  Receipt Date: 20240821
  Transmission Date: 20241016
  Serious: Yes (Hospitalization)
  Sender: Public
  Company Number: None

PATIENT
  Sex: Female

DRUGS (3)
  1. AMBRISENTAN [Suspect]
     Active Substance: AMBRISENTAN
     Indication: Pulmonary arterial hypertension
     Dosage: FREQUENCY : DAILY;?
     Route: 048
     Dates: start: 201908
  2. MYCOPHENOLATE MOFETIL [Concomitant]
     Active Substance: MYCOPHENOLATE MOFETIL
  3. REMODULIN [Concomitant]

REACTIONS (9)
  - Dyspnoea [None]
  - Device related infection [None]
  - Coma [None]
  - Memory impairment [None]
  - Oxygen consumption decreased [None]
  - Chest pain [None]
  - Fatigue [None]
  - Dizziness [None]
  - Peripheral swelling [None]
